FAERS Safety Report 6541447-7 (Version None)
Quarter: 2010Q1

REPORT INFORMATION
  Report Type: 
  Country: None (occurrence: None)
  Receive Date: 20100118
  Receipt Date: 20091218
  Transmission Date: 20100710
  Serious: Yes (Death, Other)
  Sender: FDA-Public Use
  Company Number: PHEH2009US18843

PATIENT
  Sex: Female

DRUGS (1)
  1. PROLEUKIN [Suspect]
     Indication: NEOPLASM MALIGNANT
     Dosage: UNK
     Dates: start: 20090930

REACTIONS (3)
  - DEATH [None]
  - DYSPNOEA [None]
  - PRODUCT QUALITY ISSUE [None]
